FAERS Safety Report 6179861-4 (Version None)
Quarter: 2009Q2

REPORT INFORMATION
  Report Type: 
  Country: None (occurrence: None)
  Receive Date: 20090505
  Receipt Date: 20090414
  Transmission Date: 20091009
  Serious: No
  Sender: FDA-Public Use
  Company Number: US-ALEXION-A200900125

PATIENT
  Sex: Male

DRUGS (6)
  1. SOLIRIS [Suspect]
     Indication: PAROXYSMAL NOCTURNAL HAEMOGLOBINURIA
     Dosage: UNK
     Route: 042
  2. SOLIRIS [Suspect]
     Dosage: 900 MG, UNK
     Route: 042
     Dates: start: 20070515
  3. OXYCONTIN [Concomitant]
     Indication: ABDOMINAL PAIN
     Dosage: 60 MG, BID
     Route: 048
  4. OXYCONTIN [Concomitant]
     Indication: OESOPHAGEAL SPASM
  5. DILAUDID [Concomitant]
     Indication: ABDOMINAL PAIN
     Dosage: 4 MG, PRN, Q4H
     Route: 048
  6. DILAUDID [Concomitant]
     Indication: OESOPHAGEAL SPASM

REACTIONS (3)
  - ABDOMINAL PAIN [None]
  - OESOPHAGEAL SPASM [None]
  - VOMITING [None]
